FAERS Safety Report 24166859 (Version 2)
Quarter: 2024Q3

REPORT INFORMATION
  Report Type: Spontaneous
  Country: US (occurrence: US)
  Receive Date: 20240802
  Receipt Date: 20240905
  Transmission Date: 20241016
  Serious: Yes (Other)
  Sender: NOVARTIS
  Company Number: US-002147023-NVSC2024US157291

PATIENT
  Sex: Male

DRUGS (1)
  1. PLUVICTO [Suspect]
     Active Substance: LUTETIUM LU-177 VIPIVOTIDE TETRAXETAN
     Indication: Hormone-refractory prostate cancer
     Dosage: 200 MCI, OTHER (EVERY 6 WEEKS)
     Route: 042
     Dates: start: 20240508, end: 20240731

REACTIONS (2)
  - Hip fracture [Unknown]
  - Head injury [Unknown]

NARRATIVE: CASE EVENT DATE: 20240731
